FAERS Safety Report 7731056-6 (Version None)
Quarter: 2011Q3

REPORT INFORMATION
  Report Type: 
  Country: None (occurrence: None)
  Receive Date: 20110906
  Receipt Date: 20110906
  Transmission Date: 20111222
  Serious: Yes (Other)
  Sender: FDA-Public Use
  Company Number: None

PATIENT
  Sex: Female
  Weight: 44.452 kg

DRUGS (2)
  1. CIPROFLOXACIN [Concomitant]
  2. LEVAQUIN [Suspect]

REACTIONS (7)
  - URINARY TRACT INFECTION [None]
  - TENDON RUPTURE [None]
  - DRUG INEFFECTIVE [None]
  - TENDON PAIN [None]
  - ARTHRALGIA [None]
  - TENDON DISORDER [None]
  - ESCHERICHIA INFECTION [None]
